FAERS Safety Report 20013226 (Version 1)
Quarter: 2021Q4

REPORT INFORMATION
  Report Type: Spontaneous
  Country: JP (occurrence: JP)
  Receive Date: 20211029
  Receipt Date: 20211029
  Transmission Date: 20220303
  Serious: Yes (Death, Other)
  Sender: FDA-Public Use
  Company Number: JP-BAYER-2021A235204

PATIENT
  Age: 69 Year
  Sex: Male

DRUGS (1)
  1. NEXAVAR [Suspect]
     Active Substance: SORAFENIB
     Dosage: 800MG
     Dates: start: 2010, end: 2011

REACTIONS (7)
  - Portal vein thrombosis [Fatal]
  - Hepatic failure [Fatal]
  - Disease progression [Unknown]
  - Diarrhoea [Unknown]
  - Dyspepsia [Unknown]
  - Dysphonia [Unknown]
  - Palmar-plantar erythrodysaesthesia syndrome [Unknown]
